FAERS Safety Report 4941977-5 (Version None)
Quarter: 2006Q1

REPORT INFORMATION
  Report Type: 
  Country: None (occurrence: None)
  Receive Date: 20060313
  Receipt Date: 20051005
  Transmission Date: 20060701
  Serious: Yes (Hospitalization)
  Sender: FDA-Public Use
  Company Number: US-MERCK-0510USA04846

PATIENT
  Age: 66 Year
  Sex: Male
  Weight: 86 kg

DRUGS (3)
  1. VIOXX [Suspect]
     Indication: SPONDYLITIS
     Route: 048
     Dates: start: 19990101, end: 20010401
  2. VIOXX [Suspect]
     Route: 048
     Dates: start: 20000101, end: 20010401
  3. TYLENOL (CAPLET) [Concomitant]
     Route: 065

REACTIONS (29)
  - ACUTE PULMONARY OEDEMA [None]
  - ANXIETY [None]
  - ATRIAL FIBRILLATION [None]
  - CARDIAC DISORDER [None]
  - CARDIAC FAILURE CONGESTIVE [None]
  - CARDIOMYOPATHY [None]
  - CONGESTIVE CARDIOMYOPATHY [None]
  - CORONARY ARTERY DISEASE [None]
  - DIZZINESS POSTURAL [None]
  - DRUG INTOLERANCE [None]
  - HAEMATURIA [None]
  - HEPATIC FUNCTION ABNORMAL [None]
  - HYPERGLYCAEMIA [None]
  - HYPERLIPIDAEMIA [None]
  - HYPERTENSION [None]
  - HYPERTHYROIDISM [None]
  - INJURY [None]
  - INSOMNIA [None]
  - INTERVERTEBRAL DISC DISORDER [None]
  - LEUKOCYTOSIS [None]
  - MYOCARDIAL INFARCTION [None]
  - NECK PAIN [None]
  - OBSTRUCTIVE UROPATHY [None]
  - OTITIS EXTERNA [None]
  - PAIN [None]
  - PHIMOSIS [None]
  - PULMONARY HYPERTENSION [None]
  - SHOULDER PAIN [None]
  - UMBILICAL HERNIA [None]
